FAERS Safety Report 7528086-6 (Version None)
Quarter: 2011Q2

REPORT INFORMATION
  Report Type: 
  Country: None (occurrence: None)
  Receive Date: 20110531
  Receipt Date: 20110513
  Transmission Date: 20111010
  Serious: Yes (Hospitalization)
  Sender: FDA-Public Use
  Company Number: AMAG201100125

PATIENT
  Age: 75 Year
  Sex: Female
  Weight: 64.4 kg

DRUGS (7)
  1. FERAHEME [Suspect]
     Indication: NEPHROGENIC ANAEMIA
     Dosage: 4 ML, SINGLE
     Dates: start: 20110315, end: 20110315
  2. FERAHEME [Suspect]
     Indication: IRON DEFICIENCY ANAEMIA
     Dosage: 4 ML, SINGLE
     Dates: start: 20110315, end: 20110315
  3. TOPRON (METOPROLOL SUCCINATE) [Concomitant]
  4. CATAPRES [Concomitant]
  5. AMLODIPINE (AMLODIPINE MALEATE) [Concomitant]
  6. SINGULAIR [Concomitant]
  7. MICARDIS [Concomitant]

REACTIONS (11)
  - PULMONARY EMBOLISM [None]
  - HYPOXIA [None]
  - HYPERHIDROSIS [None]
  - HYPERSENSITIVITY [None]
  - CHEST PAIN [None]
  - RESPIRATORY DISTRESS [None]
  - DYSPNOEA [None]
  - HYPERTENSION [None]
  - DRUG HYPERSENSITIVITY [None]
  - PHARYNGEAL ERYTHEMA [None]
  - MYOCARDIAL ISCHAEMIA [None]
